FAERS Safety Report 4343877-0 (Version None)
Quarter: 2004Q2

REPORT INFORMATION
  Report Type: 
  Country: None (occurrence: None)
  Receive Date: 20040419
  Receipt Date: 20040407
  Transmission Date: 20050107
  Serious: No
  Sender: FDA-Public Use
  Company Number: 04P-087-0255792-00

PATIENT
  Age: 30 Year
  Sex: Female

DRUGS (6)
  1. OMNICEF [Suspect]
     Indication: PHARYNGITIS
     Dosage: 300 MG, 1 IN 1 D, PER ORAL
     Route: 048
     Dates: start: 20030627, end: 20030701
  2. CLOTRIMAZOLE [Suspect]
     Indication: VAGINITIS
     Dosage: 100 MG, 1 IN 1 D, VAGINAL
     Route: 067
     Dates: start: 20030701, end: 20030701
  3. SERRAPEPTASE [Concomitant]
  4. NAPHAZOLINE HCL [Concomitant]
  5. BETAMETHASONE [Concomitant]
  6. BUFEXAMAC [Concomitant]

REACTIONS (8)
  - ABNORMAL SENSATION IN EYE [None]
  - DRUG ERUPTION [None]
  - OEDEMA MUCOSAL [None]
  - RASH GENERALISED [None]
  - SENSORY DISTURBANCE [None]
  - STEVENS-JOHNSON SYNDROME [None]
  - VAGINITIS [None]
  - VISUAL ACUITY REDUCED [None]
